FAERS Safety Report 17854738 (Version 1)
Quarter: 2020Q2

REPORT INFORMATION
  Report Type: Spontaneous
  Country: CH (occurrence: CH)
  Receive Date: 20200603
  Receipt Date: 20200603
  Transmission Date: 20200714
  Serious: Yes (Death, Other)
  Sender: FDA-Public Use
  Company Number: CH-009507513-2005CHE009912

PATIENT
  Age: 88 Year
  Sex: Male

DRUGS (1)
  1. PEMBROLIZUMAB. [Suspect]
     Active Substance: PEMBROLIZUMAB
     Indication: SQUAMOUS CELL CARCINOMA OF THE PAROTID GLAND
     Dosage: UNK
     Dates: start: 201504, end: 201706

REACTIONS (1)
  - Immune-mediated pneumonitis [Fatal]

NARRATIVE: CASE EVENT DATE: 201706
